FAERS Safety Report 6002740-X (Version None)
Quarter: 2008Q4

REPORT INFORMATION
  Report Type: 
  Country: None (occurrence: None)
  Receive Date: 20081212
  Receipt Date: 20081202
  Transmission Date: 20090506
  Serious: No
  Sender: FDA-Public Use
  Company Number: 231950K08USA

PATIENT

DRUGS (7)
  1. REBIF [Suspect]
     Indication: MULTIPLE SCLEROSIS
     Dosage: 44 MCG, 3 IN 1 WEEKS, SUBCUTANEOUS
     Route: 058
     Dates: start: 20070213, end: 20070901
  2. REBIF [Suspect]
     Indication: MULTIPLE SCLEROSIS
     Dosage: 44 MCG, 3 IN 1 WEEKS, SUBCUTANEOUS
     Route: 058
     Dates: start: 20080625, end: 20080920
  3. NEURONTIN [Concomitant]
  4. TEGRETOL [Concomitant]
  5. KLONOPIN [Concomitant]
  6. TOPAMAX [Concomitant]
  7. PROZAC [Concomitant]

REACTIONS (2)
  - CONDITION AGGRAVATED [None]
  - MYELITIS TRANSVERSE [None]
